FAERS Safety Report 9500193 (Version 3)
Quarter: 2014Q4

REPORT INFORMATION
  Report Type: Spontaneous
  Country: US (occurrence: None)
  Receive Date: 20130903
  Receipt Date: 20141229
  Transmission Date: 20150529
  Serious: Yes (Hospitalization)
  Sender: FDA-Public Use
  Company Number: 2013MPI00502

PATIENT
  Age: 63 Year
  Sex: Male
  Weight: 122 kg

DRUGS (15)
  1. DACARBAZINE. [Suspect]
     Active Substance: DACARBAZINE
     Indication: HODGKIN^S DISEASE
     Dosage: 920 MG, QCYCLE, INTRAVENOUS
     Route: 042
     Dates: start: 20130726, end: 20130809
  2. SENNA-S (DOCUSATE SODIUM, SENNA ALEXANDRINA) [Concomitant]
  3. VINBLASTINE [Suspect]
     Active Substance: VINBLASTINE
     Indication: HODGKIN^S DISEASE
     Dosage: 15 MG, QCYCLE, INTRAVEOUS
     Route: 042
     Dates: start: 20130726, end: 20130809
  4. ACYCLOVIR (ACICLOVIR) [Concomitant]
  5. ATORVASTATIN [Concomitant]
     Active Substance: ATORVASTATIN
  6. PHENERGAN [Concomitant]
     Active Substance: PROMETHAZINE HYDROCHLORIDE
  7. NEXIUM [Concomitant]
     Active Substance: ESOMEPRAZOLE MAGNESIUM
  8. BRENTUXIMAB VEDOTIN [Suspect]
     Active Substance: BRENTUXIMAB VEDOTIN
     Indication: HODGKIN^S DISEASE
     Dosage: 120 MG, QCYCLE, INTRAVENOUS
     Route: 042
     Dates: start: 20130726, end: 20130809
  9. DOXORUBICIN [Suspect]
     Active Substance: DOXORUBICIN
     Indication: HODGKIN^S DISEASE
     Dosage: 60 MG, QCYCLE, INTRAVENOUS
     Route: 042
     Dates: start: 20130726, end: 20130809
  10. METFORMIN [Concomitant]
     Active Substance: METFORMIN HYDROCHLORIDE
  11. RIVAROXABAN [Concomitant]
     Active Substance: RIVAROXABAN
  12. METOPROLOL [Concomitant]
     Active Substance: METOPROLOL
  13. FLUOXETINE [Concomitant]
     Active Substance: FLUOXETINE\FLUOXETINE HYDROCHLORIDE
  14. ATIVAN [Concomitant]
     Active Substance: LORAZEPAM
  15. MIRALAX (MACROGOL) [Concomitant]

REACTIONS (13)
  - Nausea [None]
  - Hallucination [None]
  - Malaise [None]
  - Hyponatraemia [None]
  - Abdominal pain [None]
  - Cough [None]
  - White blood cell count decreased [None]
  - Supraventricular extrasystoles [None]
  - Febrile neutropenia [None]
  - Fluid overload [None]
  - Culture urine positive [None]
  - Decreased appetite [None]
  - Sinus tachycardia [None]

NARRATIVE: CASE EVENT DATE: 20130817
